FAERS Safety Report 26031990 (Version 1)
Quarter: 2025Q4

REPORT INFORMATION
  Report Type: Spontaneous
  Country: US (occurrence: None)
  Receive Date: 20251112
  Receipt Date: 20251112
  Transmission Date: 20260117
  Serious: No
  Sender: Alvotech
  Company Number: US-ALVOTECHPMS-2025-ALVOTECHPMS-005530

PATIENT
  Age: 25 Year
  Sex: Male

DRUGS (2)
  1. ADALIMUMAB-RYVK [Suspect]
     Active Substance: ADALIMUMAB-RYVK
     Indication: Crohn^s disease
     Dosage: AS DIRECTED
     Route: 058
     Dates: start: 20250815
  2. LATANOPROST [Concomitant]
     Active Substance: LATANOPROST
     Indication: Glaucoma

REACTIONS (3)
  - Injection site haemorrhage [Unknown]
  - Device malfunction [Not Recovered/Not Resolved]
  - Incorrect dose administered [Not Recovered/Not Resolved]

NARRATIVE: CASE EVENT DATE: 20251024
